FAERS Safety Report 7343215-5 (Version None)
Quarter: 2011Q1

REPORT INFORMATION
  Report Type: 
  Country: None (occurrence: None)
  Receive Date: 20110310
  Receipt Date: 20110307
  Transmission Date: 20110831
  Serious: Yes (Other)
  Sender: FDA-Public Use
  Company Number: CHPA2011US03721

PATIENT
  Sex: Female

DRUGS (1)
  1. THERAFLU FLU AND CHEST CONGESTION WITHOUT PSE [Suspect]
     Indication: INFLUENZA
     Dosage: 1 DF, ONCE/SINGLE
     Route: 048
     Dates: start: 20110227, end: 20110227

REACTIONS (1)
  - RESPIRATORY RATE DECREASED [None]
